FAERS Safety Report 5456196-6 (Version None)
Quarter: 2007Q3

REPORT INFORMATION
  Report Type: 
  Country: None (occurrence: None)
  Receive Date: 20070918
  Receipt Date: 20070702
  Transmission Date: 20080115
  Serious: Yes (Other)
  Sender: FDA-Public Use
  Company Number: US-ASTRAZENECA-2006UW23595

PATIENT
  Age: 51 Year
  Sex: Female
  Weight: 165 kg

DRUGS (7)
  1. SEROQUEL [Suspect]
     Indication: HALLUCINATION
     Route: 048
     Dates: start: 20000101
  2. SEROQUEL [Suspect]
     Route: 048
     Dates: start: 20000101
  3. SEROQUEL [Suspect]
     Route: 048
     Dates: start: 20070101
  4. HALDOL [Concomitant]
  5. RISPERDAL [Concomitant]
  6. ZYPREXA [Concomitant]
  7. ZOLOFT [Concomitant]

REACTIONS (4)
  - BLOOD CHOLESTEROL INCREASED [None]
  - BLOOD TRIGLYCERIDES INCREASED [None]
  - DIABETES MELLITUS [None]
  - PANCREATITIS [None]
